FAERS Safety Report 8028875-8 (Version None)
Quarter: 2012Q1

REPORT INFORMATION
  Report Type: 
  Country: None (occurrence: None)
  Receive Date: 20120106
  Receipt Date: 20120103
  Transmission Date: 20120608
  Serious: Yes (Hospitalization)
  Sender: FDA-Public Use
  Company Number: US-GLAXOSMITHKLINE-A0959808A

PATIENT
  Age: 58 Year
  Sex: Female

DRUGS (4)
  1. ADVAIR DISKUS 100/50 [Concomitant]
  2. COREG [Concomitant]
  3. TREXIMET [Suspect]
     Indication: MIGRAINE
     Dosage: 1TAB AS REQUIRED
     Route: 048
     Dates: start: 20101101, end: 20100101
  4. SINGULAIR [Concomitant]

REACTIONS (4)
  - FEELING ABNORMAL [None]
  - VISUAL FIELD DEFECT [None]
  - PALPITATIONS [None]
  - BLOOD PRESSURE INCREASED [None]
